FAERS Safety Report 8302167-1 (Version None)
Quarter: 2012Q2

REPORT INFORMATION
  Report Type: 
  Country: None (occurrence: None)
  Receive Date: 20120420
  Receipt Date: 20120305
  Transmission Date: 20120825
  Serious: Yes (Hospitalization)
  Sender: FDA-Public Use
  Company Number: US-NOVOPROD-346373

PATIENT
  Age: 70 Year
  Sex: Female
  Weight: 99.773 kg

DRUGS (3)
  1. VICTOZA [Suspect]
     Indication: DIABETES MELLITUS
     Dosage: 0.6 MG, QD
     Route: 058
     Dates: start: 20120124, end: 20120215
  2. VICTOZA [Suspect]
     Dosage: 0.6 MG, QD
     Dates: start: 20120217
  3. LANTUS [Concomitant]
     Indication: DIABETES MELLITUS
     Route: 058

REACTIONS (2)
  - NERVE COMPRESSION [None]
  - PRURITUS GENERALISED [None]
